FAERS Safety Report 8113413-1 (Version None)
Quarter: 2012Q1

REPORT INFORMATION
  Report Type: 
  Country: None (occurrence: None)
  Receive Date: 20120203
  Receipt Date: 20120131
  Transmission Date: 20120608
  Serious: Yes (Death, Hospitalization)
  Sender: FDA-Public Use
  Company Number: PHHY2011FR100540

PATIENT
  Sex: Male
  Weight: 85 kg

DRUGS (10)
  1. CLOPIDOGREL [Concomitant]
     Dosage: 1 DF, QD
     Route: 048
  2. ONBREZ [Suspect]
     Indication: CHRONIC OBSTRUCTIVE PULMONARY DISEASE
     Dosage: 300 UG, QD
     Dates: start: 20111025
  3. HUMALOG [Concomitant]
     Indication: DIABETES MELLITUS
     Dosage: UNK
     Route: 058
  4. PLAVIX [Concomitant]
  5. SINGULAIR [Concomitant]
     Indication: CHRONIC OBSTRUCTIVE PULMONARY DISEASE
     Dosage: 10 MG, QD
     Route: 048
  6. FLIXOTAIDE [Concomitant]
     Indication: CHRONIC OBSTRUCTIVE PULMONARY DISEASE
     Dosage: 250 UG, BID
  7. INSULIN [Concomitant]
  8. VENTOLIN [Concomitant]
  9. LANTUS [Concomitant]
     Indication: DIABETES MELLITUS
     Route: 058
  10. FUROSEMIDE [Concomitant]
     Dosage: 20 MG, QD

REACTIONS (2)
  - ACUTE PULMONARY OEDEMA [None]
  - CHRONIC OBSTRUCTIVE PULMONARY DISEASE [None]
